FAERS Safety Report 4575781-7 (Version None)
Quarter: 2005Q1

REPORT INFORMATION
  Report Type: 
  Country: None (occurrence: None)
  Receive Date: 20050128
  Receipt Date: 20050128
  Transmission Date: 20050727
  Serious: No
  Sender: FDA-Public Use
  Company Number: None

PATIENT
  Age: 48 Year
  Sex: Female
  Weight: 112.9457 kg

DRUGS (1)
  1. CLONAZEPAM [Suspect]
     Dates: start: 20040920

REACTIONS (1)
  - DRUG INEFFECTIVE [None]
